FAERS Safety Report 7004808-8 (Version None)
Quarter: 2010Q3

REPORT INFORMATION
  Report Type: 
  Country: None (occurrence: None)
  Receive Date: 20100921
  Receipt Date: 20100216
  Transmission Date: 20110219
  Serious: No
  Sender: FDA-Public Use
  Company Number: A0852420A

PATIENT
  Sex: Female

DRUGS (6)
  1. EPZICOM [Suspect]
     Indication: HIV INFECTION
     Route: 065
     Dates: start: 20080408
  2. NORVIR [Suspect]
     Indication: HIV INFECTION
     Route: 065
     Dates: start: 20080408, end: 20080508
  3. KALETRA [Suspect]
     Indication: HIV INFECTION
     Route: 065
     Dates: start: 20080408, end: 20080508
  4. INTELENCE [Suspect]
     Indication: HIV INFECTION
     Route: 065
     Dates: start: 20080408
  5. ISENTRESS [Suspect]
     Indication: HIV INFECTION
     Route: 065
     Dates: start: 20080408
  6. REYATAZ [Suspect]
     Indication: HIV INFECTION
     Route: 065
     Dates: start: 20080408, end: 20080508

REACTIONS (1)
  - URTICARIA [None]
